FAERS Safety Report 18430156 (Version 2)
Quarter: 2025Q3

REPORT INFORMATION
  Report Type: Spontaneous
  Country: EU (occurrence: EU)
  Receive Date: 20201027
  Receipt Date: 20250701
  Transmission Date: 20251020
  Serious: Yes (Other)
  Sender: AUROBINDO
  Company Number: EU-ROCHE-2699389

PATIENT
  Age: 17 Year
  Sex: Female

DRUGS (4)
  1. MEMANTINE [Suspect]
     Active Substance: MEMANTINE
     Indication: Oscillopsia
     Route: 065
  2. MEMANTINE [Suspect]
     Active Substance: MEMANTINE
     Indication: Nystagmus
  3. CLONAZEPAM [Suspect]
     Active Substance: CLONAZEPAM
     Indication: Nystagmus
     Route: 065
  4. CLONAZEPAM [Suspect]
     Active Substance: CLONAZEPAM
     Indication: Oscillopsia

REACTIONS (1)
  - Blindness [Unknown]
